FAERS Safety Report 4355411-X (Version None)
Quarter: 2004Q2

REPORT INFORMATION
  Report Type: 
  Country: None (occurrence: None)
  Receive Date: 20040504
  Receipt Date: 20040421
  Transmission Date: 20050107
  Serious: Yes (Death)
  Sender: FDA-Public Use
  Company Number: BE-JNJFOC-20040404952

PATIENT
  Age: 3 Month
  Sex: Female

DRUGS (2)
  1. PREPUSID (CISAPRIDE) SUSPENSION [Suspect]
     Indication: GASTROOESOPHAGEAL REFLUX DISEASE
     Dosage: 0.3 MG, 4 IN 1 DAY, ORAL
     Route: 048
     Dates: start: 20040123, end: 20040221
  2. MORPHINE [Concomitant]

REACTIONS (2)
  - SHUNT INFECTION [None]
  - STAPHYLOCOCCAL SEPSIS [None]
